FAERS Safety Report 6044972-0 (Version None)
Quarter: 2009Q1

REPORT INFORMATION
  Report Type: 
  Country: None (occurrence: None)
  Receive Date: 20090116
  Receipt Date: 20090116
  Transmission Date: 20090719
  Serious: Yes (Other)
  Sender: FDA-Public Use
  Company Number: None

PATIENT
  Age: 82 Year
  Sex: Female

DRUGS (4)
  1. LIDODERM [Suspect]
     Indication: FALL
     Dosage: 1 PATCH 12 HRS ON/12 OFF
     Dates: start: 20081123
  2. LIDODERM [Suspect]
     Indication: PAIN
     Dosage: 1 PATCH 12 HRS ON/12 OFF
     Dates: start: 20081123
  3. LIDODERM [Suspect]
     Indication: FALL
     Dosage: 1 PATCH 12 HRS ON/12 OFF
     Dates: start: 20081204
  4. LIDODERM [Suspect]
     Indication: PAIN
     Dosage: 1 PATCH 12 HRS ON/12 OFF
     Dates: start: 20081204

REACTIONS (7)
  - DELUSION [None]
  - DIZZINESS [None]
  - HEADACHE [None]
  - INSOMNIA [None]
  - NIGHTMARE [None]
  - RESTLESSNESS [None]
  - VISION BLURRED [None]
